FAERS Safety Report 4937408-1 (Version None)
Quarter: 2006Q1

REPORT INFORMATION
  Report Type: 
  Country: None (occurrence: None)
  Receive Date: 20060302
  Receipt Date: 20060214
  Transmission Date: 20060701
  Serious: Yes (Other)
  Sender: FDA-Public Use
  Company Number: GB200602002626

PATIENT
  Age: 76 Year
  Sex: Male

DRUGS (2)
  1. XIGRIS [Suspect]
  2. CELEXANE (HEPARIN-FRACTION, SODIUM SALT) [Concomitant]

REACTIONS (1)
  - THROMBOCYTOPENIA [None]
